FAERS Safety Report 9319370 (Version 1)
Quarter: 2013Q2

REPORT INFORMATION
  Report Type: Spontaneous
  Country: US (occurrence: None)
  Receive Date: 20130524
  Receipt Date: 20130524
  Transmission Date: 20140414
  Serious: Yes (Disabling)
  Sender: FDA-Public Use
  Company Number: 1726219

PATIENT
  Age: 11 Year
  Sex: Male

DRUGS (2)
  1. METHOTREXATE [Suspect]
     Indication: CHEMOTHERAPY
     Route: 037
  2. VINCRISTINE SULFATE [Suspect]
     Route: 042

REACTIONS (5)
  - Headache [None]
  - Nausea [None]
  - Photophobia [None]
  - Vision blurred [None]
  - Optic neuropathy [None]
